FAERS Safety Report 9388103 (Version 1)
Quarter: 2013Q3

REPORT INFORMATION
  Report Type: Spontaneous
  Country: GR (occurrence: GR)
  Receive Date: 20130708
  Receipt Date: 20130708
  Transmission Date: 20140515
  Serious: Yes (Hospitalization)
  Sender: FDA-Public Use
  Company Number: GR-ABBOTT-13X-066-1115254-00

PATIENT
  Age: 7 Year
  Sex: Male

DRUGS (12)
  1. KLARICID PEDIATRIC [Suspect]
     Indication: PYREXIA
     Route: 048
  2. KLARICID PEDIATRIC [Suspect]
     Indication: COUGH
  3. KLARICID PEDIATRIC [Suspect]
     Indication: NASAL CONGESTION
  4. KLARICID PEDIATRIC [Suspect]
     Indication: CHEST PAIN
  5. KLARICID [Suspect]
     Indication: PYREXIA
     Dosage: 30MG/KG BODY WEIGHT/DAY
     Route: 042
  6. KLARICID [Suspect]
     Indication: BREATH SOUNDS ABNORMAL
  7. KLARICID [Suspect]
     Indication: RALES
  8. KLARICID [Suspect]
     Indication: LUNG CONSOLIDATION
  9. CEFUROXIME [Suspect]
     Indication: BREATH SOUNDS ABNORMAL
     Dosage: 100 MG/KG BODY WEIGHT/DAY
     Route: 042
  10. CEFUROXIME [Suspect]
     Indication: RALES
  11. CEFUROXIME [Suspect]
     Indication: LUNG CONSOLIDATION
  12. CEFUROXIME [Suspect]
     Indication: PYREXIA

REACTIONS (1)
  - Drug ineffective [Recovering/Resolving]
